FAERS Safety Report 18987415 (Version 1)
Quarter: 2021Q1

REPORT INFORMATION
  Report Type: Spontaneous
  Country: HR (occurrence: HR)
  Receive Date: 20210309
  Receipt Date: 20210309
  Transmission Date: 20210420
  Serious: Yes (Other)
  Sender: FDA-Public Use
  Company Number: HR-B.I. PHARMACEUTICALS,INC./RIDGEFIELD-2021-BI-087108

PATIENT
  Age: 61 Year
  Sex: Female

DRUGS (4)
  1. ELOCOM [Concomitant]
     Active Substance: MOMETASONE FUROATE
     Indication: PRODUCT USED FOR UNKNOWN INDICATION
     Dosage: 40%, UNG
     Dates: start: 201803
  2. DOKSICIKLIN [DOXYCYCLINE HYCLATE] [Concomitant]
     Indication: PRODUCT USED FOR UNKNOWN INDICATION
     Dates: start: 201803
  3. GILOTRIF [Suspect]
     Active Substance: AFATINIB
     Dates: start: 201805
  4. GILOTRIF [Suspect]
     Active Substance: AFATINIB
     Indication: LUNG ADENOCARCINOMA
     Dates: start: 201609, end: 201805

REACTIONS (3)
  - Purulent discharge [Recovered/Resolved]
  - Rash pustular [Recovered/Resolved]
  - Diarrhoea [Recovered/Resolved]

NARRATIVE: CASE EVENT DATE: 201803
